FAERS Safety Report 4699539-3 (Version None)
Quarter: 2005Q2

REPORT INFORMATION
  Report Type: 
  Country: None (occurrence: None)
  Receive Date: 20050622
  Receipt Date: 20050428
  Transmission Date: 20051028
  Serious: Yes (Hospitalization, Other)
  Sender: FDA-Public Use
  Company Number: ENT 2005-0053

PATIENT
  Age: 72 Year
  Sex: Female

DRUGS (4)
  1. COMTAN [Suspect]
     Indication: PARKINSON'S DISEASE
     Dosage: 800 MG (200 MG, 4 IN 1 D) ORAL
     Route: 048
     Dates: start: 20030101, end: 20031007
  2. MODOPAR [Concomitant]
  3. FLECAINIDE ACETATE [Concomitant]
  4. EXELON [Concomitant]

REACTIONS (10)
  - AORTIC VALVE INCOMPETENCE [None]
  - BACK PAIN [None]
  - CARBOHYDRATE ANTIGEN 125 INCREASED [None]
  - CARDIAC FAILURE [None]
  - CYTOLYTIC HEPATITIS [None]
  - INTERSTITIAL LUNG DISEASE [None]
  - KLEBSIELLA INFECTION [None]
  - LUNG INFECTION [None]
  - URINARY TRACT INFECTION [None]
  - WEIGHT DECREASED [None]
